FAERS Safety Report 8308649-0 (Version None)
Quarter: 2012Q2

REPORT INFORMATION
  Report Type: 
  Country: None (occurrence: None)
  Receive Date: 20120421
  Receipt Date: 20120421
  Transmission Date: 20120825
  Serious: Yes (Other)
  Sender: FDA-Public Use
  Company Number: None

PATIENT
  Sex: Female

DRUGS (1)
  1. COPAXONE [Suspect]
     Indication: MULTIPLE SCLEROSIS
     Dosage: 20MG ONCE A DAY SUBQ
     Route: 058
     Dates: start: 20071204, end: 20120412

REACTIONS (1)
  - CENTRAL NERVOUS SYSTEM LESION [None]
